FAERS Safety Report 12517425 (Version 1)
Quarter: 2016Q2

REPORT INFORMATION
  Report Type: Spontaneous
  Country: US (occurrence: US)
  Receive Date: 20160630
  Receipt Date: 20160630
  Transmission Date: 20160815
  Serious: Yes (Hospitalization)
  Sender: FDA-Public Use
  Company Number: US-SUN PHARMACEUTICAL INDUSTRIES LTD-2016US-119282

PATIENT
  Age: 51 Year
  Sex: Female

DRUGS (1)
  1. PREDNISONE. [Suspect]
     Active Substance: PREDNISONE
     Indication: POLYMYOSITIS
     Route: 065

REACTIONS (5)
  - Bacteraemia [Unknown]
  - Acute respiratory distress syndrome [Unknown]
  - Sepsis [Unknown]
  - Haemolytic uraemic syndrome [Unknown]
  - Klebsiella infection [Unknown]
